FAERS Safety Report 25385333 (Version 1)
Quarter: 2025Q2

REPORT INFORMATION
  Report Type: Spontaneous
  Country: CN (occurrence: CN)
  Receive Date: 20250602
  Receipt Date: 20250602
  Transmission Date: 20250716
  Serious: Yes (Other)
  Sender: CHEPLAPHARM
  Company Number: CN-CHEPLA-2025006699

PATIENT
  Age: 36 Year
  Sex: Male

DRUGS (6)
  1. GANCICLOVIR [Suspect]
     Active Substance: GANCICLOVIR
     Indication: Cytomegalovirus infection
     Route: 042
  2. GANCICLOVIR [Suspect]
     Active Substance: GANCICLOVIR
     Indication: Epstein-Barr virus infection
     Route: 042
  3. GANCICLOVIR [Suspect]
     Active Substance: GANCICLOVIR
     Indication: Colitis ulcerative
     Route: 042
  4. GANCICLOVIR [Suspect]
     Active Substance: GANCICLOVIR
     Indication: Cytomegalovirus infection
     Route: 048
  5. GANCICLOVIR [Suspect]
     Active Substance: GANCICLOVIR
     Indication: Epstein-Barr virus infection
     Route: 048
  6. GANCICLOVIR [Suspect]
     Active Substance: GANCICLOVIR
     Indication: Colitis ulcerative
     Route: 048

REACTIONS (3)
  - Colitis ulcerative [Unknown]
  - Viral myocarditis [Recovered/Resolved]
  - Disease progression [Recovered/Resolved]
